FAERS Safety Report 7601356-9 (Version None)
Quarter: 2011Q3

REPORT INFORMATION
  Report Type: 
  Country: None (occurrence: None)
  Receive Date: 20110711
  Receipt Date: 20090712
  Transmission Date: 20111222
  Serious: Yes (Death, Other)
  Sender: FDA-Public Use
  Company Number: US-BAYER-200925933NA

PATIENT
  Age: 79 Year
  Sex: Male
  Weight: 87.075 kg

DRUGS (12)
  1. TRASYLOL [Suspect]
  2. NIFEDIPINE [Concomitant]
     Dosage: 250 MG, UNK
     Route: 042
     Dates: start: 20070329, end: 20070329
  3. ACETYLSALICYLIC ACID SRT [Concomitant]
     Dosage: 81 MG, LONGTERM
     Route: 048
  4. TRASYLOL [Suspect]
     Indication: AORTIC SURGERY
  5. LISINOPRIL [Concomitant]
     Dosage: 5 MG, LONG TERM
     Route: 048
  6. PROTAMINE SULFATE [Concomitant]
     Dosage: 250 MG, UNK
     Route: 042
     Dates: start: 20070329, end: 20070329
  7. PLATELETS [Concomitant]
     Dosage: 20 U, UNK
     Route: 042
     Dates: start: 20070329
  8. FRESH FROZEN PLASMA [Concomitant]
     Dosage: 1 U, UNK
     Dates: start: 20070329
  9. NIPRIDE [Concomitant]
     Dosage: 50 MG, UNK
     Route: 042
     Dates: start: 20070329, end: 20070329
  10. HEPARIN [Concomitant]
     Dosage: 10000 U, UNK
     Route: 042
     Dates: start: 20070329, end: 20070329
  11. TRASYLOL [Suspect]
     Indication: PRODUCT USED FOR UNKNOWN INDICATION
     Dosage: 1 ML TEST, 200 ML PRIME, 200 ML LOADING DOSE, 50 ML/HR INFUSION
     Route: 042
     Dates: start: 20070329, end: 20070329
  12. LASIX [Concomitant]
     Dosage: 20 MG, LONG TERM
     Route: 048

REACTIONS (9)
  - FEAR [None]
  - STRESS [None]
  - UNEVALUABLE EVENT [None]
  - RENAL INJURY [None]
  - EMOTIONAL DISTRESS [None]
  - DEATH [None]
  - RENAL FAILURE [None]
  - ANXIETY [None]
  - PAIN [None]
